FAERS Safety Report 18500989 (Version 1)
Quarter: 2020Q4

REPORT INFORMATION
  Report Type: Spontaneous
  Country: FR (occurrence: FR)
  Receive Date: 20201113
  Receipt Date: 20201113
  Transmission Date: 20210114
  Serious: Yes (Hospitalization, Other)
  Sender: FDA-Public Use
  Company Number: FR-AUROBINDO-AUR-APL-2020-055542

PATIENT
  Age: 66 Year
  Sex: Female
  Weight: 77 kg

DRUGS (2)
  1. AMOXICILLIN. [Suspect]
     Active Substance: AMOXICILLIN
     Indication: BRONCHITIS
     Dosage: UNK
     Route: 048
     Dates: start: 20200921, end: 20200923
  2. CLAVULANIC ACID [Suspect]
     Active Substance: CLAVULANIC ACID
     Indication: BRONCHITIS
     Dosage: UNK
     Route: 048
     Dates: start: 20200921, end: 20200923

REACTIONS (2)
  - Eosinophilia [Recovered/Resolved]
  - Acute generalised exanthematous pustulosis [Recovering/Resolving]

NARRATIVE: CASE EVENT DATE: 20200923
